FAERS Safety Report 6100596-8 (Version None)
Quarter: 2009Q1

REPORT INFORMATION
  Report Type: 
  Country: None (occurrence: None)
  Receive Date: 20090303
  Receipt Date: 20090223
  Transmission Date: 20090719
  Serious: Yes (Hospitalization)
  Sender: FDA-Public Use
  Company Number: US-GILEAD-2009-0020376

PATIENT
  Sex: Female

DRUGS (17)
  1. LETAIRIS [Suspect]
     Indication: PULMONARY HYPERTENSION
     Route: 048
     Dates: start: 20080201, end: 20090216
  2. VENTAVIS [Concomitant]
     Indication: PULMONARY HYPERTENSION
     Dates: start: 20050101
  3. CARTIA XT [Concomitant]
     Indication: RAYNAUD'S PHENOMENON
  4. ZOCOR [Concomitant]
     Indication: BLOOD CHOLESTEROL
  5. ASPIRIN [Concomitant]
     Indication: CARDIAC FAILURE CONGESTIVE
  6. OXYGEN [Concomitant]
     Indication: PULMONARY HYPERTENSION
     Dates: start: 20050101
  7. LASIX [Concomitant]
     Indication: CARDIAC FAILURE CONGESTIVE
  8. LASIX [Concomitant]
     Indication: PULMONARY HYPERTENSION
  9. LEVOXYL [Concomitant]
     Indication: HYPOTHYROIDISM
     Dates: start: 19960101
  10. REMERON [Concomitant]
     Indication: DEPRESSION
     Dates: start: 20070101
  11. REMERON [Concomitant]
     Indication: RAYNAUD'S PHENOMENON
  12. OMEPRAZOLE [Concomitant]
     Indication: REGURGITATION
     Dates: start: 20060101
  13. POTASSIUM CHLORIDE [Concomitant]
     Indication: ELECTROLYTE SUBSTITUTION THERAPY
     Dates: start: 20060101
  14. MULTI-VITAMIN [Concomitant]
  15. FISH OIL [Concomitant]
     Indication: PROPHYLAXIS
     Dates: start: 20090130
  16. FOSAMAX PLUS D [Concomitant]
     Indication: OSTEOPOROSIS
     Dates: start: 19970101
  17. CALCIUM [Concomitant]
     Indication: OSTEOPOROSIS
     Dates: start: 19970101

REACTIONS (18)
  - AGGRESSION [None]
  - ANAEMIA [None]
  - BONE DENSITY DECREASED [None]
  - CARDIAC FAILURE CONGESTIVE [None]
  - DECREASED APPETITE [None]
  - DEPENDENCE ON ENABLING MACHINE OR DEVICE [None]
  - DISTURBANCE IN ATTENTION [None]
  - DRY MOUTH [None]
  - DRY SKIN [None]
  - FATIGUE [None]
  - FEELING COLD [None]
  - HAEMATOCHEZIA [None]
  - HYPOGEUSIA [None]
  - NASAL CONGESTION [None]
  - OEDEMA [None]
  - PALPITATIONS [None]
  - PULMONARY HYPERTENSION [None]
  - WEIGHT DECREASED [None]
